FAERS Safety Report 12886498 (Version 3)
Quarter: 2019Q4

REPORT INFORMATION
  Report Type: Report from Study
  Country: US (occurrence: US)
  Receive Date: 20161026
  Receipt Date: 20191024
  Transmission Date: 20200122
  Serious: Yes (Other)
  Sender: FDA-Public Use
  Company Number: US-ARIAD PHARMACEUTICALS, INC-2016US006486

PATIENT
  Sex: Male

DRUGS (16)
  1. PONATINIB [Suspect]
     Active Substance: PONATINIB
     Dosage: 30 MILLIGRAM, QD
     Route: 048
  2. VICODIN [Concomitant]
     Active Substance: ACETAMINOPHEN\HYDROCODONE BITARTRATE
  3. PLAVIX [Concomitant]
     Active Substance: CLOPIDOGREL BISULFATE
  4. ATORVASTATIN CALCIUM. [Concomitant]
     Active Substance: ATORVASTATIN CALCIUM
  5. ISOSORBIDE                         /07346401/ [Concomitant]
     Active Substance: ISOSORBIDE
  6. AMBIEN [Concomitant]
     Active Substance: ZOLPIDEM TARTRATE
  7. ASPIRIN 81 [Concomitant]
     Active Substance: ASPIRIN
  8. IMDUR [Concomitant]
     Active Substance: ISOSORBIDE MONONITRATE
     Indication: HYPERTENSION
     Dosage: UNK
  9. COREG [Concomitant]
     Active Substance: CARVEDILOL
  10. PROCHLORPERAZINE MALEATE. [Concomitant]
     Active Substance: PROCHLORPERAZINE MALEATE
  11. XANAX [Concomitant]
     Active Substance: ALPRAZOLAM
  12. ZOFRAN [Concomitant]
     Active Substance: ONDANSETRON HYDROCHLORIDE
  13. PONATINIB [Suspect]
     Active Substance: PONATINIB
     Indication: CHRONIC MYELOID LEUKAEMIA
     Dosage: 30 MILLIGRAM, QD
     Route: 048
     Dates: start: 20160414
  14. PONATINIB [Suspect]
     Active Substance: PONATINIB
     Dosage: 30 MILLIGRAM, QD
     Route: 048
  15. PONATINIB [Suspect]
     Active Substance: PONATINIB
     Dosage: 30 MILLIGRAM, QD
     Route: 048
  16. PONATINIB [Suspect]
     Active Substance: PONATINIB
     Dosage: 15 MILLIGRAM, QD
     Route: 048

REACTIONS (22)
  - Gynaecomastia [Unknown]
  - Taste disorder [Unknown]
  - Retching [Unknown]
  - Asthenia [Unknown]
  - Food aversion [Unknown]
  - Arthralgia [Unknown]
  - Oedema peripheral [Unknown]
  - Blood pressure increased [Not Recovered/Not Resolved]
  - Headache [Not Recovered/Not Resolved]
  - Decreased activity [Not Recovered/Not Resolved]
  - Hypophagia [Unknown]
  - Prostatic mass [Unknown]
  - Nausea [Not Recovered/Not Resolved]
  - Fatigue [Not Recovered/Not Resolved]
  - Rash [Unknown]
  - Weight increased [Unknown]
  - Decreased appetite [Unknown]
  - Pain in extremity [Unknown]
  - Malaise [Not Recovered/Not Resolved]
  - Stent placement [Unknown]
  - Myalgia [Unknown]
  - Neck pain [Unknown]
